FAERS Safety Report 13264585 (Version 1)
Quarter: 2017Q1

REPORT INFORMATION
  Report Type: Spontaneous
  Country: US (occurrence: US)
  Receive Date: 20170223
  Receipt Date: 20170223
  Transmission Date: 20170428
  Serious: Yes (Hospitalization, Other)
  Sender: FDA-Public Use
  Company Number: US-PFIZER INC-2017076786

PATIENT
  Age: 58 Year
  Sex: Male
  Weight: 102 kg

DRUGS (1)
  1. RAPAMUNE [Suspect]
     Active Substance: SIROLIMUS
     Indication: LIVER TRANSPLANT
     Dosage: 2 MG, 1X/DAY
     Route: 048
     Dates: end: 20170217

REACTIONS (3)
  - Cerebrovascular accident [Unknown]
  - Product use issue [Unknown]
  - Peripheral swelling [Unknown]
